FAERS Safety Report 8820724 (Version 3)
Quarter: 2012Q4

REPORT INFORMATION
  Report Type: 
  Country: NO (occurrence: NO)
  Receive Date: 20121002
  Receipt Date: 20121012
  Transmission Date: 20130627
  Serious: Yes (Life-Threatening, Hospitalization)
  Sender: FDA-Public Use
  Company Number: NO-PFIZER INC-2012238757

PATIENT
  Age: 56 Year
  Sex: Male

DRUGS (5)
  1. CRIZOTINIB [Suspect]
     Indication: LUNG NEOPLASM MALIGNANT
     Dosage: 250 mg, 2x/day
     Dates: start: 201207
  2. PARACET [Concomitant]
     Dosage: 1 g, 4x/day
  3. OXYNORM [Concomitant]
     Dosage: 5 mg, as needed
  4. MORFIN [Concomitant]
     Dosage: 2.5 mg, as needed
     Route: 042
  5. LAKTULOSE [Concomitant]
     Dosage: 15-30 ml x 2 when needed

REACTIONS (3)
  - Tumour haemorrhage [Recovering/Resolving]
  - Disease progression [Unknown]
  - Lung neoplasm malignant [Unknown]
